FAERS Safety Report 9003715 (Version 1)
Quarter: 2013Q1

REPORT INFORMATION
  Report Type: Spontaneous
  Country: US (occurrence: US)
  Receive Date: 20130108
  Receipt Date: 20130108
  Transmission Date: 20140127
  Serious: No
  Sender: FDA-Public Use
  Company Number: US-GLAXOSMITHKLINE-A0965277A

PATIENT
  Age: 31 Year
  Sex: Female

DRUGS (5)
  1. LOVAZA [Suspect]
     Indication: BLOOD TRIGLYCERIDES INCREASED
     Dosage: 2CAP TWICE PER DAY
     Route: 048
     Dates: start: 201201
  2. METFORMIN [Concomitant]
  3. TEGRETOL [Concomitant]
  4. CELEXA [Concomitant]
  5. RESTORIL [Concomitant]

REACTIONS (3)
  - Abdominal discomfort [Recovering/Resolving]
  - Eructation [Unknown]
  - Defaecation urgency [Unknown]
